FAERS Safety Report 7938703-4 (Version None)
Quarter: 2011Q4

REPORT INFORMATION
  Report Type: 
  Country: None (occurrence: None)
  Receive Date: 20111124
  Receipt Date: 20111114
  Transmission Date: 20120403
  Serious: Yes (Life-Threatening, Hospitalization, Other)
  Sender: FDA-Public Use
  Company Number: BR-BRISTOL-MYERS SQUIBB COMPANY-16226391

PATIENT
  Age: 56 Year
  Sex: Female
  Weight: 66 kg

DRUGS (4)
  1. ORENCIA [Suspect]
     Indication: RHEUMATOID ARTHRITIS
     Dosage: STARTED 1 YEAR AGO THERAPY FROM:PAST 10 MONTH INFUSION
  2. METHOTREXATE [Suspect]
     Indication: RHEUMATOID ARTHRITIS
  3. LEFLUNOMIDE [Suspect]
     Indication: RHEUMATOID ARTHRITIS
  4. PREDNISONE TAB [Concomitant]
     Dosage: ALSO TAKEN 60MG/D

REACTIONS (7)
  - ACUTE RESPIRATORY FAILURE [None]
  - PULMONARY HAEMORRHAGE [None]
  - INFECTION [None]
  - OPHTHALMOPLEGIA [None]
  - TUMOUR LYSIS SYNDROME [None]
  - ACUTE LYMPHOCYTIC LEUKAEMIA [None]
  - RENAL FAILURE ACUTE [None]
